FAERS Safety Report 9929413 (Version 1)
Quarter: 2014Q1

REPORT INFORMATION
  Report Type: Spontaneous
  Country: US (occurrence: US)
  Receive Date: 20140227
  Receipt Date: 20140227
  Transmission Date: 20141002
  Serious: No
  Sender: FDA-Public Use
  Company Number: US-BAYER-2014-031031

PATIENT
  Age: 71 Year
  Sex: Female
  Weight: 73 kg

DRUGS (2)
  1. ALEVE CAPLET [Suspect]
     Indication: ANALGESIC THERAPY
     Dosage: 2 DF, QD WITH FOOD
     Route: 048
     Dates: start: 20140220, end: 20140226
  2. ALEVE CAPLET [Suspect]
     Indication: ARTHRITIS

REACTIONS (1)
  - Drug ineffective [None]
